FAERS Safety Report 7866270-2 (Version None)
Quarter: 2011Q4

REPORT INFORMATION
  Report Type: 
  Country: None (occurrence: None)
  Receive Date: 20111028
  Receipt Date: 20110523
  Transmission Date: 20120403
  Serious: No
  Sender: FDA-Public Use
  Company Number: US-GLAXOSMITHKLINE-A0928559A

PATIENT
  Age: 76 Year
  Sex: Female

DRUGS (7)
  1. WARFARIN SODIUM [Concomitant]
  2. LEVOTHYROXINE SODIUM [Concomitant]
  3. FUROSEMIDE [Concomitant]
  4. MULTAQ [Concomitant]
  5. SIMVASTATIN [Concomitant]
  6. ADVAIR DISKUS 100/50 [Suspect]
     Indication: CHRONIC OBSTRUCTIVE PULMONARY DISEASE
     Dosage: 1PUFF PER DAY
     Route: 055
     Dates: start: 20100101
  7. ASPIRIN [Concomitant]

REACTIONS (1)
  - DYSPNOEA [None]
